FAERS Safety Report 9471135 (Version 1)
Quarter: 2013Q3

REPORT INFORMATION
  Report Type: Spontaneous
  Country: US (occurrence: None)
  Receive Date: 20130816
  Receipt Date: 20130816
  Transmission Date: 20140515
  Serious: Yes (Other)
  Sender: FDA-Public Use
  Company Number: 2013EXPUS00126

PATIENT
  Sex: Female

DRUGS (3)
  1. EXPAREL (BUPIVACAINE) LIPOSOME INJECTABLE SUSPENSIONN, MG/ML [Suspect]
     Indication: POSTOPERATIVE ANALGESIA
     Dosage: 20 ML (256 MG) ONCE, INFILTRATION
     Dates: start: 2013, end: 2013
  2. CELEBREX (CELECOXIB) [Concomitant]
  3. LYRICA (PREGAMBLIN) [Concomitant]

REACTIONS (6)
  - Orthostatic hypotension [None]
  - Cardio-respiratory arrest [None]
  - Hypovolaemia [None]
  - Haematocrit decreased [None]
  - Bradycardia [None]
  - Pain [None]
